FAERS Safety Report 4852126-6 (Version None)
Quarter: 2005Q4

REPORT INFORMATION
  Report Type: 
  Country: None (occurrence: None)
  Receive Date: 20051209
  Receipt Date: 20051128
  Transmission Date: 20060501
  Serious: Yes (Other)
  Sender: FDA-Public Use
  Company Number: 2005161144

PATIENT
  Age: 60 Year
  Sex: Male
  Weight: 130 kg

DRUGS (15)
  1. GABAPENTIN [Suspect]
     Indication: NEURALGIA
     Dosage: (3 IN 1 D), ORAL
     Route: 048
     Dates: start: 20051024, end: 20051113
  2. MORPHINE [Concomitant]
  3. METFORMIN HCL [Concomitant]
  4. LOSARTAN POTASSIUM [Concomitant]
  5. CO-AMILOFRUSE (AMILORIDE HYDROCHLORIDE, FUROSEMIDE) [Concomitant]
  6. PARACETAMOL (PARACETAMOL) [Concomitant]
  7. INSULIN [Concomitant]
  8. ASPIRIN [Concomitant]
  9. CARDURA [Concomitant]
  10. IBUPROFEN [Concomitant]
  11. ATENOLOL [Concomitant]
  12. GAVISCON (SOCIUM ALGINATE, SODIUM BICARBONATE) [Concomitant]
  13. SENNA (SENNA) [Concomitant]
  14. SIMVASTATIN [Concomitant]
  15. ORAMORPH SR [Concomitant]

REACTIONS (1)
  - HALLUCINATION, AUDITORY [None]
